FAERS Safety Report 5627843-0 (Version None)
Quarter: 2008Q1

REPORT INFORMATION
  Report Type: 
  Country: None (occurrence: None)
  Receive Date: 20080215
  Receipt Date: 20080215
  Transmission Date: 20080703
  Serious: No
  Sender: FDA-Public Use
  Company Number: None

PATIENT
  Sex: Male
  Weight: 72 kg

DRUGS (1)
  1. HEPARIN [Suspect]
     Indication: CARDIOPULMONARY BYPASS
     Dosage: 25K UNITS/IV
     Route: 042
     Dates: start: 20080214

REACTIONS (2)
  - BLOOD PRESSURE DECREASED [None]
  - DRUG INEFFECTIVE [None]
